FAERS Safety Report 13908846 (Version 1)
Quarter: 2017Q3

REPORT INFORMATION
  Report Type: Spontaneous
  Country: KR (occurrence: KR)
  Receive Date: 20170828
  Receipt Date: 20170828
  Transmission Date: 20171127
  Serious: Yes (Other)
  Sender: FDA-Public Use
  Company Number: KR-BAXTER-2017BAX030418

PATIENT

DRUGS (1)
  1. FLOSEAL HEMOSTATIC MATRIX [Suspect]
     Active Substance: THROMBIN
     Indication: TISSUE SEALING
     Route: 065

REACTIONS (2)
  - Spinal cord compression [Unknown]
  - Procedural complication [Unknown]
